FAERS Safety Report 17514491 (Version 1)
Quarter: 2020Q1

REPORT INFORMATION
  Report Type: Other
  Country: US (occurrence: US)
  Receive Date: 20200307
  Receipt Date: 20200307
  Transmission Date: 20200409
  Serious: Yes (Hospitalization)
  Sender: FDA-Public Use
  Company Number: US-APTAPHARMA INC.-2081370

PATIENT
  Age: 25 Year
  Sex: Male

DRUGS (5)
  1. CREATINE [Suspect]
     Active Substance: CREATINE
     Route: 065
  2. LIGANDROL [Suspect]
     Active Substance: VK-5211
     Route: 065
  3. IBUTAMOREN. [Suspect]
     Active Substance: IBUTAMOREN
     Route: 065
  4. IBUPROFEN ORAL [Suspect]
     Active Substance: IBUPROFEN
     Indication: MYALGIA
     Route: 065
  5. CLOMIPHENE [Suspect]
     Active Substance: CLOMIPHENE
     Route: 065

REACTIONS (8)
  - Hepatitis infectious mononucleosis [Recovered/Resolved]
  - Cold type haemolytic anaemia [Recovered/Resolved]
  - Cholestasis [Recovered/Resolved]
  - Jaundice [Recovered/Resolved]
  - Hepatitis acute [Recovered/Resolved]
  - Ocular icterus [Recovered/Resolved]
  - Seizure [Recovered/Resolved]
  - Haemolytic anaemia [Recovered/Resolved]
